FAERS Safety Report 15830956 (Version 1)
Quarter: 2018Q4

REPORT INFORMATION
  Report Type: Spontaneous
  Country: US (occurrence: US)
  Receive Date: 20181218
  Receipt Date: 20181218
  Transmission Date: 20190205
  Serious: Yes (Hospitalization)
  Sender: FDA-Public Use
  Company Number: None

PATIENT
  Age: 30 Year
  Sex: Female
  Weight: 77.11 kg

DRUGS (6)
  1. SERTRALINE [Concomitant]
     Active Substance: SERTRALINE HYDROCHLORIDE
  2. MIRENA [Suspect]
     Active Substance: LEVONORGESTREL
     Dates: start: 20181010, end: 20181213
  3. CENTRUM DAILY MULTIVITAMIN [Concomitant]
  4. TOPAMAX [Concomitant]
     Active Substance: TOPIRAMATE
  5. ADVIL [Concomitant]
     Active Substance: IBUPROFEN
  6. RIZATRIPTAN. [Concomitant]
     Active Substance: RIZATRIPTAN

REACTIONS (14)
  - Neck pain [None]
  - Arthritis [None]
  - Gait disturbance [None]
  - Musculoskeletal stiffness [None]
  - Medial tibial stress syndrome [None]
  - Pyrexia [None]
  - Dysphagia [None]
  - Urticaria [None]
  - Rash generalised [None]
  - Monoplegia [None]
  - Pruritus [None]
  - Sinus pain [None]
  - Pain in extremity [None]
  - Loss of consciousness [None]

NARRATIVE: CASE EVENT DATE: 20181012
